FAERS Safety Report 5127337-5 (Version None)
Quarter: 2006Q4

REPORT INFORMATION
  Report Type: 
  Country: None (occurrence: None)
  Receive Date: 20061010
  Receipt Date: 20060927
  Transmission Date: 20070319
  Serious: Yes (Other)
  Sender: FDA-Public Use
  Company Number: 2006117803

PATIENT
  Age: 69 Year
  Sex: Male

DRUGS (3)
  1. ATORVASTATIN CALCIUM [Suspect]
     Indication: ANGINA PECTORIS
     Dosage: (10 MG), ORAL
     Route: 048
     Dates: start: 20040827, end: 20060630
  2. CIPROFIBRATE (CIPROFIBRATE) [Concomitant]
  3. LANSOPRAZOLE [Concomitant]

REACTIONS (2)
  - AMNESIA [None]
  - DISTURBANCE IN ATTENTION [None]
